FAERS Safety Report 9107333 (Version 1)
Quarter: 2013Q1

REPORT INFORMATION
  Report Type: Spontaneous
  Country: ES (occurrence: ES)
  Receive Date: 20130221
  Receipt Date: 20130221
  Transmission Date: 20140127
  Serious: Yes (Other)
  Sender: FDA-Public Use
  Company Number: ES-ELI_LILLY_AND_COMPANY-ES201302003478

PATIENT
  Age: 69 Year
  Sex: Male
  Weight: 84 kg

DRUGS (12)
  1. ALIMTA [Suspect]
     Indication: LUNG NEOPLASM MALIGNANT
     Dosage: UNK, EVERY 3 WEEKS
     Route: 042
     Dates: start: 20130115
  2. MOTILIUM [Concomitant]
     Indication: VOMITING
     Dosage: 10 MG, EVERY 8 HRS
     Route: 048
     Dates: start: 20121119
  3. PRIMPERAN [Concomitant]
     Indication: VOMITING
     Dosage: 10 MG, EVERY 8 HRS
     Route: 048
     Dates: start: 20130118
  4. LARGACTIL [Concomitant]
     Indication: VOMITING
     Dosage: 25 MG, EVERY 8 HRS
     Route: 048
     Dates: start: 20130118
  5. ORFIDAL [Concomitant]
     Indication: ANXIETY
     Dosage: 1 MG, QD
     Route: 048
     Dates: start: 20130118
  6. ADIRO [Concomitant]
     Indication: ANTIPLATELET THERAPY
     Dosage: 1 MG, QD
     Route: 048
  7. OMEPRAZOL [Concomitant]
     Indication: PROPHYLAXIS AGAINST GASTROINTESTINAL ULCER
     Dosage: 20 MG, QD
     Route: 048
  8. LIORESAL [Concomitant]
     Indication: PAIN
     Dosage: 10 MG, EVERY 8 HRS
     Route: 048
     Dates: start: 20130118
  9. DORMICUM [Concomitant]
     Indication: INSOMNIA
     Dosage: 7.5 MG, QD
     Route: 048
     Dates: start: 20130118
  10. PAROXETINA [Concomitant]
     Indication: DEPRESSION
     Dosage: 20 MG, QD
     Route: 048
  11. NOVOMIX [Concomitant]
     Indication: DIABETES MELLITUS
     Dosage: 34 IU, BID
     Route: 058
     Dates: start: 20121119
  12. ACTRAPID                           /00646001/ [Concomitant]
     Indication: DIABETES MELLITUS
     Dosage: 10 IU, PRN
     Route: 058
     Dates: start: 20121119

REACTIONS (1)
  - Depressed level of consciousness [Not Recovered/Not Resolved]
